FAERS Safety Report 9262796 (Version 2)
Quarter: 2013Q2

REPORT INFORMATION
  Report Type: Spontaneous
  Country: JP (occurrence: JP)
  Receive Date: 20130430
  Receipt Date: 20130513
  Transmission Date: 20140414
  Serious: Yes (Death, Other)
  Sender: FDA-Public Use
  Company Number: PHHY2013JP039053

PATIENT
  Sex: Male

DRUGS (2)
  1. NEORAL [Suspect]
     Indication: INTERSTITIAL LUNG DISEASE
     Dosage: 100 MG, UNK
     Route: 048
     Dates: start: 201302, end: 20130414
  2. PREDONINE [Concomitant]
     Indication: INTERSTITIAL LUNG DISEASE

REACTIONS (3)
  - Oral administration complication [Fatal]
  - Interstitial lung disease [Fatal]
  - Drug ineffective [Unknown]
